FAERS Safety Report 16138604 (Version 2)
Quarter: 2020Q2

REPORT INFORMATION
  Report Type: Spontaneous
  Country: FR (occurrence: FR)
  Receive Date: 20190330
  Receipt Date: 20200530
  Transmission Date: 20200713
  Serious: Yes (Hospitalization)
  Sender: FDA-Public Use
  Company Number: FR-ACCORD-116407

PATIENT
  Age: 82 Year
  Sex: Female
  Weight: 78 kg

DRUGS (14)
  1. ZYMAD [Suspect]
     Active Substance: CHOLECALCIFEROL
     Indication: HYPOVITAMINOSIS
     Route: 048
     Dates: start: 20180906, end: 20181121
  2. ATORVASTATIN/ATORVASTATIN CALCIUM [Suspect]
     Active Substance: ATORVASTATIN CALCIUM
     Indication: CARDIOVASCULAR EVENT PROPHYLAXIS
     Dosage: 0-0-1
     Route: 048
     Dates: start: 20180906, end: 20181119
  3. CYMBALTA [Suspect]
     Active Substance: DULOXETINE HYDROCHLORIDE
     Indication: DEPRESSION
     Dosage: 0-0-1, STRENGTH: 30 MG
     Route: 048
     Dates: start: 20180906
  4. LANTUS [Suspect]
     Active Substance: INSULIN GLARGINE
     Indication: KETOSIS-PRONE DIABETES MELLITUS
     Dosage: 0-0-22 UNITS
     Route: 058
     Dates: start: 20180906
  5. SPECIAFOLDINE [Suspect]
     Active Substance: FOLIC ACID
     Indication: HYPOVITAMINOSIS
     Dosage: 5 MG
     Route: 048
     Dates: start: 20180906, end: 20181118
  6. VICTOZA [Suspect]
     Active Substance: LIRAGLUTIDE
     Indication: KETOSIS-PRONE DIABETES MELLITUS
     Dosage: 0-0-1
     Route: 048
     Dates: start: 20180906
  7. DULOXETINE/DULOXETINE HYDROCHLORIDE [Suspect]
     Active Substance: DULOXETINE HYDROCHLORIDE
     Indication: DEPRESSION
     Dosage: 0-0-1
     Route: 048
     Dates: start: 20180906
  8. DUOPLAVIN [Suspect]
     Active Substance: ASPIRIN\CLOPIDOGREL
     Indication: THROMBOSIS PROPHYLAXIS
     Dosage: 1-0-0
     Route: 048
     Dates: start: 20180906, end: 20181118
  9. FUROSEMIDE. [Suspect]
     Active Substance: FUROSEMIDE
     Indication: HYPERTENSION
     Dosage: 1-0-0
     Route: 048
     Dates: start: 20180906
  10. LERCAN [Suspect]
     Active Substance: LERCANIDIPINE
     Indication: HYPERTENSION
     Dosage: 0-0-1, STRENGTH: 20 MG
     Route: 048
     Dates: start: 20180906
  11. COLECALCIFEROL [Suspect]
     Active Substance: CHOLECALCIFEROL
     Indication: HYPOVITAMINOSIS
     Dosage: 80000 IU, Q15D
     Route: 048
     Dates: start: 20180906, end: 20181121
  12. RAMIPRIL. [Suspect]
     Active Substance: RAMIPRIL
     Indication: HYPERTENSION
     Dosage: 1-0-0
     Route: 048
     Dates: start: 20180906
  13. DOLIPRANE [Suspect]
     Active Substance: ACETAMINOPHEN
     Indication: PAIN
     Dosage: 1-1-1
     Route: 048
     Dates: start: 20180906
  14. LERCANIDIPINE [Suspect]
     Active Substance: LERCANIDIPINE
     Indication: HYPERTENSION
     Dosage: 0-0-1
     Route: 048
     Dates: start: 20180906

REACTIONS (3)
  - Fall [Unknown]
  - Asthenia [Not Recovered/Not Resolved]
  - Rhabdomyolysis [Not Recovered/Not Resolved]

NARRATIVE: CASE EVENT DATE: 20181103
